FAERS Safety Report 13031809 (Version 1)
Quarter: 2016Q4

REPORT INFORMATION
  Report Type: Spontaneous
  Country: US (occurrence: US)
  Receive Date: 20161215
  Receipt Date: 20161215
  Transmission Date: 20170207
  Serious: No
  Sender: FDA-Public Use
  Company Number: US-PFIZER INC-2016571414

PATIENT
  Age: 71 Year
  Sex: Female

DRUGS (8)
  1. PROPOXYPHENE. [Suspect]
     Active Substance: PROPOXYPHENE
  2. AZITHROMYCIN ANHYDROUS. [Suspect]
     Active Substance: AZITHROMYCIN ANHYDROUS
  3. TETRACYCLINE HCL [Suspect]
     Active Substance: TETRACYCLINE HYDROCHLORIDE
  4. MEPERIDINE HCL [Suspect]
     Active Substance: MEPERIDINE HYDROCHLORIDE
  5. ACETAMINOPHEN. [Suspect]
     Active Substance: ACETAMINOPHEN
  6. GABAPENTIN. [Suspect]
     Active Substance: GABAPENTIN
  7. CODEINE [Suspect]
     Active Substance: CODEINE
  8. BENZYLPENICILLIN POTASSIUM [Suspect]
     Active Substance: PENICILLIN G POTASSIUM

REACTIONS (1)
  - Drug hypersensitivity [Unknown]
